FAERS Safety Report 9226685 (Version 1)
Quarter: 2013Q2

REPORT INFORMATION
  Report Type: Spontaneous
  Country: US (occurrence: None)
  Receive Date: 20130410
  Receipt Date: 20130410
  Transmission Date: 20140414
  Serious: Yes (Hospitalization)
  Sender: FDA-Public Use
  Company Number: None

PATIENT
  Age: 39 Year
  Sex: Male
  Weight: 182.81 kg

DRUGS (2)
  1. ZOSYN [Suspect]
     Indication: CELLULITIS
     Dosage: IVPB
  2. AUGMENTIN [Suspect]
     Indication: CELLULITIS
     Dosage: BID PO
     Route: 048

REACTIONS (2)
  - Cellulitis [None]
  - Abscess [None]
